FAERS Safety Report 6772228-7 (Version None)
Quarter: 2010Q2

REPORT INFORMATION
  Report Type: 
  Country: None (occurrence: None)
  Receive Date: 20100614
  Receipt Date: 20100601
  Transmission Date: 20101027
  Serious: Yes (Hospitalization)
  Sender: FDA-Public Use
  Company Number: OMPQ-NO-1006S-0365

PATIENT
  Age: 59 Year
  Sex: Female

DRUGS (5)
  1. OMNIPAQUE 140 [Suspect]
     Indication: DRUG USE FOR UNKNOWN INDICATION
     Dosage: SINGLE DOSE, I.A.
     Route: 014
     Dates: start: 20100512, end: 20100512
  2. ASPIRIN [Suspect]
  3. PLAVIX [Suspect]
  4. LANSOPRAZOLE [Suspect]
  5. KEFLEX [Suspect]

REACTIONS (2)
  - ERYTHEMA MULTIFORME [None]
  - RASH PAPULAR [None]
